FAERS Safety Report 11417259 (Version 3)
Quarter: 2015Q4

REPORT INFORMATION
  Report Type: Spontaneous
  Country: US (occurrence: US)
  Receive Date: 20150825
  Receipt Date: 20151113
  Transmission Date: 20160304
  Serious: No
  Sender: FDA-Public Use
  Company Number: US-PFIZER INC-2015196123

PATIENT
  Age: 72 Year
  Sex: Male
  Weight: 99 kg

DRUGS (24)
  1. GLIMEPIRIDE. [Concomitant]
     Active Substance: GLIMEPIRIDE
     Dosage: 4 MG, 1X/DAY
     Route: 048
     Dates: start: 20130429
  2. HUMALOG [Concomitant]
     Active Substance: INSULIN LISPRO
     Dosage: 3 IU, 1X/DAY,((MORNING GRADUALLY GOES UP THE HIGHER THE SUGAR UNITS SUBC SUPPER (SLIDING SCALE))
     Route: 058
     Dates: start: 20130429
  3. LANTUS [Concomitant]
     Active Substance: INSULIN GLARGINE
     Dosage: 26 IU, 1X/DAY, (AT BEDTIME (HS))
     Route: 058
     Dates: start: 20140303
  4. SUTENT [Suspect]
     Active Substance: SUNITINIB MALATE
     Indication: RENAL CANCER METASTATIC
     Dosage: 50 MG, DAILY, FOR 28 DAYS ON AND 14 DAYS OFF
     Route: 048
     Dates: start: 20150605
  5. PEPCID [Concomitant]
     Active Substance: FAMOTIDINE
     Dosage: 20 MG, 1X/DAY (AT BED TIME)
     Route: 048
     Dates: start: 20140411
  6. VITAMIN D3 [Concomitant]
     Active Substance: CHOLECALCIFEROL
     Dosage: 1 DF, DAILY (1000, ONE TABLET A DAY)
     Route: 048
     Dates: start: 20140411
  7. LEVEMIR [Concomitant]
     Active Substance: INSULIN DETEMIR
     Dosage: 24 IU, 1X/DAY (AT BED TIME AND IN THE MORNING BEFORE BREAKFAST)
     Dates: start: 20150605
  8. ZENPEP [Concomitant]
     Active Substance: PANCRELIPASE\PANCRELIPASE AMYLASE\PANCRELIPASE LIPASE\PANCRELIPASE PROTEASE
     Indication: PANCREATIC DISORDER
     Dosage: 5000 IU, 3X/DAY (BEFORE EACH MEAL)
     Route: 048
     Dates: start: 20130530
  9. VITAMIN D3 [Concomitant]
     Active Substance: CHOLECALCIFEROL
     Dosage: 1000 IU, 1X/DAY
     Route: 048
     Dates: start: 20140411
  10. COZAAR [Concomitant]
     Active Substance: LOSARTAN POTASSIUM
     Dosage: 100 MG, 1X/DAY
     Route: 048
     Dates: start: 20130909
  11. PROTONIX [Concomitant]
     Active Substance: PANTOPRAZOLE SODIUM
     Dosage: 40 MG, 1X/DAY
     Route: 048
     Dates: start: 20130909
  12. SUTENT [Suspect]
     Active Substance: SUNITINIB MALATE
     Dosage: 50 MG, 1X/DAY
     Route: 048
     Dates: start: 20130607
  13. SUTENT [Suspect]
     Active Substance: SUNITINIB MALATE
     Dosage: 50 MG, 1X/DAY
     Route: 048
     Dates: start: 20150813, end: 20151007
  14. ZENPEP [Concomitant]
     Active Substance: PANCRELIPASE\PANCRELIPASE AMYLASE\PANCRELIPASE LIPASE\PANCRELIPASE PROTEASE
     Dosage: 1 DF, UNK, (THREE TIMES A DAY (TID)
     Route: 048
     Dates: start: 20130530
  15. ZOCOR [Concomitant]
     Active Substance: SIMVASTATIN
     Dosage: 20 MG, 1X/DAY, AT BED TIME
     Route: 048
     Dates: start: 20130429
  16. NOVOLOG [Concomitant]
     Active Substance: INSULIN ASPART
     Dosage: 100 UNIT/ML , 3X/DAY, AT 9UNITS, 7 UNITS AT LUNCH TIME AND 13 UNITS AT SUPPER TIME
     Route: 058
     Dates: start: 20130909
  17. ALLOPURINOL. [Concomitant]
     Active Substance: ALLOPURINOL
     Dosage: 100 MG, 2X/DAY
     Route: 048
     Dates: start: 20130429
  18. COLACE [Concomitant]
     Active Substance: DOCUSATE SODIUM
     Dosage: 100 MG, 2X/DAY, (TWICE A DAY, PRN)
     Route: 048
     Dates: start: 20130909
  19. SUTENT [Suspect]
     Active Substance: SUNITINIB MALATE
     Dosage: 50 MG, 1X/DAY
     Route: 048
     Dates: start: 20150618
  20. ALDACTAZIDE [Concomitant]
     Active Substance: HYDROCHLOROTHIAZIDE\SPIRONOLACTONE
     Dosage: 25 MG, 1X/DAY
     Route: 048
     Dates: start: 20130429
  21. LANTUS [Concomitant]
     Active Substance: INSULIN GLARGINE
     Dosage: 42 IU, 1X/DAY, (AT BEDTIME)
     Route: 058
     Dates: start: 20130429
  22. LOSARTAN. [Concomitant]
     Active Substance: LOSARTAN
     Dosage: 100 MG, 1X/DAY
     Route: 048
     Dates: start: 20130429
  23. LEVEMIR [Concomitant]
     Active Substance: INSULIN DETEMIR
     Dosage: 24 IU, 1X/DAY (AT BED TIME)
     Route: 058
     Dates: start: 20130909
  24. ASPIRIN. [Concomitant]
     Active Substance: ASPIRIN
     Dosage: 81 MG, 1X/DAY
     Route: 048
     Dates: start: 20130429

REACTIONS (7)
  - Pain in extremity [Not Recovered/Not Resolved]
  - Erythema [Unknown]
  - Skin exfoliation [Not Recovered/Not Resolved]
  - Dry skin [Not Recovered/Not Resolved]
  - Blister [Not Recovered/Not Resolved]
  - Peripheral swelling [Unknown]
  - Tenderness [Not Recovered/Not Resolved]
